FAERS Safety Report 7415462-5 (Version None)
Quarter: 2011Q2

REPORT INFORMATION
  Report Type: 
  Country: None (occurrence: None)
  Receive Date: 20110414
  Receipt Date: 20110331
  Transmission Date: 20111010
  Serious: Yes (Hospitalization)
  Sender: FDA-Public Use
  Company Number: CA-JNJFOC-20110206000

PATIENT
  Sex: Female

DRUGS (2)
  1. BUDESONIDE [Concomitant]
     Route: 065
  2. REMICADE [Suspect]
     Indication: CROHN'S DISEASE
     Route: 042

REACTIONS (4)
  - VIRAL INFECTION [None]
  - PYREXIA [None]
  - ABSCESS [None]
  - WHITE BLOOD CELL COUNT INCREASED [None]
